FAERS Safety Report 10257386 (Version 1)
Quarter: 2014Q2

REPORT INFORMATION
  Report Type: Spontaneous
  Country: US (occurrence: None)
  Receive Date: 20140623
  Receipt Date: 20140623
  Transmission Date: 20141212
  Serious: Yes (Death, Hospitalization)
  Sender: FDA-Public Use
  Company Number: None

PATIENT
  Age: 74 Year
  Sex: Female
  Weight: 60 kg

DRUGS (44)
  1. CYTARABINE [Suspect]
     Dates: end: 20130531
  2. DAUNORUBICIN [Suspect]
     Dates: end: 20130525
  3. ACETAMINOPHEN [Concomitant]
  4. ADENOSINE [Concomitant]
  5. ALBUMIN [Concomitant]
  6. ALBUTEROL [Concomitant]
  7. ALLOPURINOL [Concomitant]
  8. CEFEPIME HCT [Concomitant]
  9. CHLORDIAZEPOXIDE [Concomitant]
  10. CIPROFLOXACIN [Concomitant]
  11. CLOTRIMAZOLE TP CREAM [Concomitant]
  12. DEXAMETHASONE SODIUM PHOSPHATE [Concomitant]
  13. DIATRIZOATE [Concomitant]
  14. DIGOXIN [Concomitant]
  15. DILTIAZEM [Concomitant]
  16. FLUCONAZOLE [Concomitant]
  17. FUROSEMIDE [Concomitant]
  18. GANCICLOVIR SODIUM [Concomitant]
  19. GUAIFENESIN [Concomitant]
  20. HALOPERIDOL LACTATE [Concomitant]
  21. HEPARIN [Concomitant]
  22. HYDROXYUREA [Concomitant]
  23. IMIPENEM/CILASTATIN [Concomitant]
  24. IPRATROPIUM [Concomitant]
  25. LIDOCAINE [Concomitant]
  26. LOPERAMIDE [Concomitant]
  27. LORAZEPAM [Concomitant]
  28. MAGNESIUM OXIDE [Concomitant]
  29. MAGNESIUM SULFATE [Concomitant]
  30. MESALAMINE [Concomitant]
  31. METOPROLOL [Concomitant]
  32. METRONIDAZOLE [Concomitant]
  33. MICAFUNGIN SODIUM [Concomitant]
  34. MIDAZOLAM [Concomitant]
  35. NEUTRA-PHOS POWDER [Concomitant]
  36. NYASTATIN [Concomitant]
  37. ONDASETRON HCL [Concomitant]
  38. PIPERACILLIN/TAZOBACTAM/DEXTROSE [Concomitant]
  39. POTASSIUM CHLORIDE [Concomitant]
  40. SMX/TMP [Concomitant]
  41. SODIUM PHOS/BIPHOS ENEMA [Concomitant]
  42. VALACYCLOVIR [Concomitant]
  43. VANCOMYCIN [Concomitant]
  44. VORICONAZAOLE [Concomitant]

REACTIONS (6)
  - Atrial tachycardia [None]
  - Febrile neutropenia [None]
  - Renal failure acute [None]
  - Respiratory failure [None]
  - Infection [None]
  - Acute myeloid leukaemia [None]
